FAERS Safety Report 18659830 (Version 1)
Quarter: 2020Q4

REPORT INFORMATION
  Report Type: Spontaneous
  Country: US (occurrence: US)
  Receive Date: 20201224
  Receipt Date: 20201224
  Transmission Date: 20210114
  Serious: No
  Sender: FDA-Public Use
  Company Number: US-DRREDDYS-USA/USA/20/0130140

PATIENT
  Age: 34 Year
  Sex: Female

DRUGS (1)
  1. ZENATANE [Suspect]
     Active Substance: ISOTRETINOIN
     Indication: PRODUCT USED FOR UNKNOWN INDICATION
     Dosage: RMA ISSUE DATE:, 8/8/2020 10:17:45 AM, 9/10/2020 2:40:29 PM AND 10/17/2020 10:12:38 AM
     Route: 048

REACTIONS (1)
  - Adverse drug reaction [Unknown]
